FAERS Safety Report 20888788 (Version 2)
Quarter: 2022Q2

REPORT INFORMATION
  Report Type: Spontaneous
  Country: US (occurrence: US)
  Receive Date: 20220529
  Receipt Date: 20220608
  Transmission Date: 20220720
  Serious: Yes (Hospitalization)
  Sender: FDA-Public Use
  Company Number: US-SA-SAC20220526001386

PATIENT
  Age: 63 Year
  Sex: Female

DRUGS (1)
  1. DUPIXENT [Suspect]
     Active Substance: DUPILUMAB
     Indication: Product used for unknown indication
     Dosage: 300 MG, FREQUENCY : OTHER
     Route: 058
     Dates: start: 202002

REACTIONS (3)
  - Abdominal pain [Not Recovered/Not Resolved]
  - Myalgia [Unknown]
  - Chemotherapy [Unknown]

NARRATIVE: CASE EVENT DATE: 20220302
